FAERS Safety Report 26191394 (Version 1)
Quarter: 2025Q4

REPORT INFORMATION
  Report Type: Other
  Country: EU (occurrence: EU)
  Receive Date: 20251223
  Receipt Date: 20251223
  Transmission Date: 20260119
  Serious: Yes (Death)
  Sender: Atnahs Healthcare
  Company Number: None

PATIENT

DRUGS (5)
  1. DIAZEPAM [Suspect]
     Active Substance: DIAZEPAM
     Indication: Medication error
     Dosage: 5 MG PER DAY
     Route: 048
     Dates: start: 20250102, end: 20250102
  2. CLOZAPINE [Suspect]
     Active Substance: CLOZAPINE
     Indication: Medication error
     Dosage: 300 MG, DAILY
     Route: 048
     Dates: start: 20250102, end: 20250102
  3. LOXAPINE [Suspect]
     Active Substance: LOXAPINE
     Indication: Medication error
     Dosage: 100 MG, DAILY
     Route: 048
     Dates: start: 20250102, end: 20250102
  4. ABILIFY [Suspect]
     Active Substance: ARIPIPRAZOLE
     Indication: Medication error
     Dosage: 30 MG, DAILY
     Route: 048
     Dates: start: 20250102, end: 20250102
  5. TROPATEPINE HYDROCHLORIDE [Suspect]
     Active Substance: TROPATEPINE HYDROCHLORIDE
     Indication: Medication error
     Dosage: 10 MG, DAILY
     Route: 048
     Dates: start: 20250102, end: 20250102

REACTIONS (3)
  - Product administration error [Fatal]
  - Wrong patient [Fatal]
  - Pneumonia aspiration [Fatal]

NARRATIVE: CASE EVENT DATE: 20250102
